FAERS Safety Report 5906818-8 (Version None)
Quarter: 2008Q4

REPORT INFORMATION
  Report Type: 
  Country: None (occurrence: None)
  Receive Date: 20081002
  Receipt Date: 20080921
  Transmission Date: 20090506
  Serious: Yes (Hospitalization)
  Sender: FDA-Public Use
  Company Number: CZ-ELI_LILLY_AND_COMPANY-CZ200809002913

PATIENT
  Sex: Female
  Weight: 87 kg

DRUGS (10)
  1. LISPRO 25LIS75NPL [Suspect]
     Indication: TYPE 2 DIABETES MELLITUS
     Dosage: 22 IU, EACH MORNING
     Route: 058
     Dates: start: 20070130, end: 20070504
  2. LISPRO 25LIS75NPL [Suspect]
     Dosage: 14 IU, EACH EVENING
     Route: 058
     Dates: start: 20070130, end: 20070504
  3. LISPRO 25LIS75NPL [Suspect]
     Dosage: 22 IU MORNING + 14 IU EVENING
     Route: 058
     Dates: start: 20070505
  4. LISPRO 25LIS75NPL [Suspect]
     Dosage: 14 IU, EACH EVENING
     Dates: start: 20070505
  5. BETAXOLOL [Concomitant]
     Indication: HYPERTENSION
     Dosage: UNK, UNKNOWN
     Route: 048
     Dates: start: 20040101
  6. ACETYLSALICYLIC ACID SRT [Concomitant]
     Indication: PERIPHERAL ISCHAEMIA
     Dosage: UNK, UNKNOWN
     Route: 048
     Dates: start: 20040101
  7. PENTOXIFYLLINE [Concomitant]
     Indication: PERIPHERAL ISCHAEMIA
     Dosage: UNK, UNKNOWN
     Route: 048
     Dates: start: 20040101
  8. CINNARIZIN [Concomitant]
     Indication: PERIPHERAL ISCHAEMIA
     Dosage: UNK, UNKNOWN
     Route: 048
     Dates: start: 20040101
  9. ATORVASTATIN [Concomitant]
     Indication: HYPERLIPIDAEMIA
     Dosage: UNK, UNKNOWN
     Route: 048
     Dates: start: 20061012
  10. INSULIN /00646001/ [Concomitant]
     Route: 042
     Dates: start: 20070504, end: 20070504

REACTIONS (1)
  - FEMORAL ARTERIAL STENOSIS [None]
